FAERS Safety Report 23055729 (Version 1)
Quarter: 2023Q4

REPORT INFORMATION
  Report Type: Spontaneous
  Country: FR (occurrence: FR)
  Receive Date: 20231011
  Receipt Date: 20231011
  Transmission Date: 20240110
  Serious: Yes (Hospitalization)
  Sender: FDA-Public Use
  Company Number: FR-AFSSAPS-CF2023000266

PATIENT
  Age: 69 Year
  Sex: Male
  Weight: 50 kg

DRUGS (1)
  1. IBUPROFEN [Suspect]
     Active Substance: IBUPROFEN
     Indication: Antiinflammatory therapy
     Dosage: 200 MILLIGRAM, BID
     Route: 048
     Dates: start: 20230511, end: 20230514

REACTIONS (2)
  - Necrotising fasciitis [Not Recovered/Not Resolved]
  - Septic arthritis streptococcal [Not Recovered/Not Resolved]

NARRATIVE: CASE EVENT DATE: 20230514
